FAERS Safety Report 24636861 (Version 2)
Quarter: 2024Q4

REPORT INFORMATION
  Report Type: Spontaneous
  Country: GB (occurrence: GB)
  Receive Date: 20241119
  Receipt Date: 20241209
  Transmission Date: 20250114
  Serious: No
  Sender: PFIZER
  Company Number: GB-PFIZER INC-202400298720

PATIENT
  Age: 19 Year
  Sex: Male

DRUGS (1)
  1. GENOTROPIN [Suspect]
     Active Substance: SOMATROPIN
     Dosage: UNK

REACTIONS (2)
  - Device difficult to use [Unknown]
  - Product label confusion [Unknown]
